FAERS Safety Report 17908637 (Version 1)
Quarter: 2020Q2

REPORT INFORMATION
  Report Type: Spontaneous
  Country: NL (occurrence: NL)
  Receive Date: 20200617
  Receipt Date: 20200617
  Transmission Date: 20200714
  Serious: Yes (Other)
  Sender: FDA-Public Use
  Company Number: NL-PFIZER INC-2020232285

PATIENT
  Sex: Female
  Weight: 65 kg

DRUGS (1)
  1. CABERGOLINE. [Suspect]
     Active Substance: CABERGOLINE
     Indication: LACTATION INHIBITION THERAPY
     Dosage: 0.5 MG, 2X/DAY
     Dates: start: 20190613

REACTIONS (1)
  - Breast atrophy [Not Recovered/Not Resolved]
